FAERS Safety Report 7194239-2 (Version None)
Quarter: 2010Q4

REPORT INFORMATION
  Report Type: 
  Country: None (occurrence: None)
  Receive Date: 20101223
  Receipt Date: 20101220
  Transmission Date: 20110411
  Serious: Yes (Life-Threatening, Hospitalization)
  Sender: FDA-Public Use
  Company Number: DE-ELI_LILLY_AND_COMPANY-DE201011005111

PATIENT
  Age: 53 Year
  Sex: Male
  Weight: 95 kg

DRUGS (14)
  1. EFFIENT [Suspect]
     Indication: ACUTE CORONARY SYNDROME
     Dosage: 60 MG, LOADING DOSE
     Route: 048
     Dates: start: 20101018
  2. EFFIENT [Suspect]
     Dosage: 10 MG, OTHER (MAINTENANCE)
     Route: 048
     Dates: end: 20101022
  3. ASPIRIN [Concomitant]
     Dosage: 100 MG, UNK
  4. NYSTATIN [Concomitant]
     Dosage: 2 ML, UNK
  5. PANTOZOL [Concomitant]
     Dosage: 40 MG, UNK
  6. HEPARIN [Concomitant]
  7. PARACETAMOL [Concomitant]
  8. KLACID [Concomitant]
  9. DOBUTAMIN [Concomitant]
  10. FENTANYL [Concomitant]
  11. DORMICUM [Concomitant]
  12. ACC                                /00082801/ [Concomitant]
  13. ZIENAM [Concomitant]
  14. ARTERENOL [Concomitant]

REACTIONS (4)
  - BLISTER [None]
  - DERMATITIS ALLERGIC [None]
  - GENERALISED ERYTHEMA [None]
  - TOXIC EPIDERMAL NECROLYSIS [None]
